FAERS Safety Report 10053641 (Version 1)
Quarter: 2014Q2

REPORT INFORMATION
  Report Type: Spontaneous
  Country: US (occurrence: US)
  Receive Date: 20140402
  Receipt Date: 20140402
  Transmission Date: 20141212
  Serious: No
  Sender: FDA-Public Use
  Company Number: US-PFIZER INC-2014092033

PATIENT
  Sex: Female

DRUGS (3)
  1. DILANTIN-125 [Suspect]
     Indication: CONVULSION
     Dosage: UNK
  2. DILANTIN-125 [Suspect]
     Dosage: 50 MG, 2X/DAY
  3. KEPPRA [Suspect]
     Dosage: UNK

REACTIONS (1)
  - Drug ineffective [Unknown]
